FAERS Safety Report 8854133 (Version 1)
Quarter: 2012Q4

REPORT INFORMATION
  Report Type: 
  Country: FR (occurrence: None)
  Receive Date: 20121019
  Receipt Date: 20121019
  Transmission Date: 20130627
  Serious: Yes (Hospitalization)
  Sender: FDA-Public Use
  Company Number: None

PATIENT
  Sex: Male
  Weight: 65 kg

DRUGS (1)
  1. TEMOZOLOMIDE [Suspect]
     Dosage: 3420 mg

REACTIONS (2)
  - Thrombocytopenia [None]
  - Intracranial pressure increased [None]
